FAERS Safety Report 20663190 (Version 1)
Quarter: 2022Q1

REPORT INFORMATION
  Report Type: Spontaneous
  Country: US (occurrence: None)
  Receive Date: 20220331
  Receipt Date: 20220331
  Transmission Date: 20220423
  Serious: Yes (Hospitalization)
  Sender: FDA-Public Use
  Company Number: None

PATIENT
  Age: 61 Year
  Sex: Female
  Weight: 53.3 kg

DRUGS (3)
  1. VANCOMYCIN [Suspect]
     Active Substance: VANCOMYCIN
     Indication: Osteomyelitis
     Dosage: FREQUENCY : TWICE A DAY;?
     Route: 042
     Dates: start: 20220218, end: 20220320
  2. VANCOMYCIN [Concomitant]
     Active Substance: VANCOMYCIN
     Dates: start: 20220218, end: 20220320
  3. Normal Saline 0.9% [Concomitant]
     Dates: start: 20220218, end: 20220320

REACTIONS (2)
  - Drug reaction with eosinophilia and systemic symptoms [None]
  - Acute kidney injury [None]

NARRATIVE: CASE EVENT DATE: 20220320
